FAERS Safety Report 5914500-6 (Version None)
Quarter: 2008Q4

REPORT INFORMATION
  Report Type: 
  Country: None (occurrence: None)
  Receive Date: 20081008
  Receipt Date: 20080924
  Transmission Date: 20090506
  Serious: Yes (Other)
  Sender: FDA-Public Use
  Company Number: 2008EU002012

PATIENT
  Sex: Female

DRUGS (1)
  1. PROTOPIC [Suspect]

REACTIONS (1)
  - SQUAMOUS CELL CARCINOMA [None]
